FAERS Safety Report 17394295 (Version 1)
Quarter: 2020Q1

REPORT INFORMATION
  Report Type: Spontaneous
  Country: GB (occurrence: GB)
  Receive Date: 20200210
  Receipt Date: 20200210
  Transmission Date: 20200409
  Serious: Yes (Hospitalization, Other)
  Sender: FDA-Public Use
  Company Number: GB-TEVA-2020-GB-1183026

PATIENT
  Age: 59 Year
  Sex: Female

DRUGS (1)
  1. IRBESARTAN. [Suspect]
     Active Substance: IRBESARTAN
     Route: 065

REACTIONS (2)
  - Intestinal angioedema [Recovered/Resolved]
  - Small intestinal obstruction [Recovered/Resolved]
